FAERS Safety Report 14303311 (Version 1)
Quarter: 2017Q4

REPORT INFORMATION
  Report Type: Spontaneous
  Country: FR (occurrence: FR)
  Receive Date: 20171219
  Receipt Date: 20171219
  Transmission Date: 20180321
  Serious: Yes (Hospitalization, Other)
  Sender: FDA-Public Use
  Company Number: FR-OTSUKA-17426677

PATIENT
  Sex: Female

DRUGS (3)
  1. TERCIAN [Concomitant]
     Active Substance: CYAMEMAZINE
     Indication: PRODUCT USED FOR UNKNOWN INDICATION
     Dosage: HALF TABS.
     Route: 048
     Dates: start: 20090701, end: 20100420
  2. LEXAPRO [Concomitant]
     Active Substance: ESCITALOPRAM OXALATE
     Indication: PRODUCT USED FOR UNKNOWN INDICATION
     Dosage: 10 MG, QD
     Route: 048
     Dates: start: 20090701, end: 20110110
  3. ABILIFY [Suspect]
     Active Substance: ARIPIPRAZOLE
     Indication: SCHIZOPHRENIA
     Dosage: 2009:30 MG  30 MG 1 TABLETS DAILY
     Route: 048
     Dates: start: 2005

REACTIONS (7)
  - Tremor [Unknown]
  - Delirium [Unknown]
  - Extrapyramidal disorder [Unknown]
  - Akathisia [Unknown]
  - Cogwheel rigidity [Unknown]
  - Drug administration error [Unknown]
  - Weight increased [Unknown]

NARRATIVE: CASE EVENT DATE: 2009
